FAERS Safety Report 6094258-3 (Version None)
Quarter: 2009Q1

REPORT INFORMATION
  Report Type: 
  Country: None (occurrence: None)
  Receive Date: 20090225
  Receipt Date: 20090225
  Transmission Date: 20090719
  Serious: No
  Sender: FDA-Public Use
  Company Number: None

PATIENT
  Age: 38 Year
  Sex: Female

DRUGS (3)
  1. HEPARIN [Suspect]
     Dosage: 2 DAILY
     Dates: start: 20090101, end: 20090101
  2. HEPARIN [Suspect]
  3. HEPARIN [Suspect]

REACTIONS (9)
  - ARTHRALGIA [None]
  - BONE PAIN [None]
  - CHILLS [None]
  - FEELING HOT [None]
  - HEADACHE [None]
  - HYPERACUSIS [None]
  - PAIN IN EXTREMITY [None]
  - PHOTOPHOBIA [None]
  - PRODUCT QUALITY ISSUE [None]
